FAERS Safety Report 14899664 (Version 2)
Quarter: 2018Q2

REPORT INFORMATION
  Report Type: Spontaneous
  Country: DE (occurrence: DE)
  Receive Date: 20180516
  Receipt Date: 20180517
  Transmission Date: 20180711
  Serious: Yes (Other)
  Sender: FDA-Public Use
  Company Number: DE-WEST-WARD PHARMACEUTICALS CORP.-DE-H14001-18-03876

PATIENT
  Age: 56 Year
  Sex: Male

DRUGS (2)
  1. CAPECITABINE. [Suspect]
     Active Substance: CAPECITABINE
     Indication: COLORECTAL CANCER
     Dosage: 2500 MG TO 3000 MG
     Route: 048
     Dates: start: 20150401, end: 20160327
  2. BEVACIZUMAB. [Suspect]
     Active Substance: BEVACIZUMAB
     Indication: COLORECTAL CANCER METASTATIC
     Route: 042
     Dates: start: 20150513, end: 20160314

REACTIONS (9)
  - Hypokalaemia [Recovered/Resolved]
  - Back pain [Not Recovered/Not Resolved]
  - Gamma-glutamyltransferase increased [Unknown]
  - Red blood cell count decreased [Recovered/Resolved]
  - Hypoalbuminaemia [Recovered/Resolved]
  - Leukocytosis [Recovered/Resolved]
  - Blood creatinine decreased [Recovered/Resolved]
  - Blood bilirubin increased [Recovered/Resolved]
  - Blood uric acid decreased [Recovered/Resolved]

NARRATIVE: CASE EVENT DATE: 20150428
